FAERS Safety Report 6539477-4 (Version None)
Quarter: 2010Q1

REPORT INFORMATION
  Report Type: 
  Country: None (occurrence: None)
  Receive Date: 20100115
  Receipt Date: 20091201
  Transmission Date: 20100710
  Serious: Yes (Hospitalization)
  Sender: FDA-Public Use
  Company Number: A0832391A

PATIENT
  Age: 69 Year
  Sex: Female
  Weight: 87.7 kg

DRUGS (9)
  1. AVANDIA [Suspect]
     Indication: DIABETES MELLITUS
     Dosage: 2MG TWICE PER DAY
     Route: 048
     Dates: start: 20040701, end: 20081001
  2. AVANDAMET [Suspect]
     Indication: DIABETES MELLITUS
     Route: 048
  3. NORVASC [Concomitant]
  4. AVAPRO [Concomitant]
  5. LIPITOR [Concomitant]
  6. GLUCOVANCE [Concomitant]
  7. SINGULAIR [Concomitant]
  8. DETROL [Concomitant]
  9. GLIPIZIDE [Concomitant]

REACTIONS (4)
  - ARTERIOSCLEROSIS [None]
  - CARDIAC FAILURE CONGESTIVE [None]
  - JOINT SWELLING [None]
  - MYOCARDIAL INFARCTION [None]
